FAERS Safety Report 6609385-9 (Version None)
Quarter: 2010Q1

REPORT INFORMATION
  Report Type: 
  Country: None (occurrence: None)
  Receive Date: 20100302
  Receipt Date: 20100222
  Transmission Date: 20100710
  Serious: Yes (Other)
  Sender: FDA-Public Use
  Company Number: IT-TEVA-225272ISR

PATIENT
  Age: 67 Year
  Sex: Female

DRUGS (7)
  1. DOXORUBICIN HCL [Suspect]
     Indication: MULTIPLE MYELOMA
  2. BORTEZOMIB [Suspect]
     Indication: MULTIPLE MYELOMA
  3. EPOETIN NOS [Concomitant]
  4. ITRACONAZOLE [Concomitant]
  5. BACTRIM [Concomitant]
  6. LANSOPRAZOLE [Concomitant]
  7. VALACYCLOVIR HCL [Concomitant]

REACTIONS (1)
  - REVERSIBLE POSTERIOR LEUKOENCEPHALOPATHY SYNDROME [None]
